FAERS Safety Report 5546096-5 (Version None)
Quarter: 2007Q4

REPORT INFORMATION
  Report Type: 
  Country: None (occurrence: None)
  Receive Date: 20071211
  Receipt Date: 20071008
  Transmission Date: 20080405
  Serious: No
  Sender: FDA-Public Use
  Company Number: US-BRISTOL-MYERS SQUIBB COMPANY-13933239

PATIENT
  Age: 55 Year
  Sex: Male
  Weight: 107 kg

DRUGS (2)
  1. EMSAM [Suspect]
     Route: 062
     Dates: start: 20071003
  2. NIASPAN [Concomitant]

REACTIONS (4)
  - DISTURBANCE IN ATTENTION [None]
  - FEELING HOT [None]
  - IMPAIRED DRIVING ABILITY [None]
  - MENTAL IMPAIRMENT [None]
